FAERS Safety Report 20472829 (Version 1)
Quarter: 2022Q1

REPORT INFORMATION
  Report Type: Spontaneous
  Country: DK (occurrence: DK)
  Receive Date: 20220215
  Receipt Date: 20220215
  Transmission Date: 20220423
  Serious: Yes (Hospitalization)
  Sender: FDA-Public Use
  Company Number: DK-NOVOPROD-881428

PATIENT
  Sex: Female

DRUGS (2)
  1. SAXENDA [Suspect]
     Active Substance: LIRAGLUTIDE
     Indication: Obesity
     Dosage: UNK
     Route: 065
     Dates: start: 20210921
  2. SAXENDA [Suspect]
     Active Substance: LIRAGLUTIDE
     Dosage: 1.8
     Dates: end: 20211216

REACTIONS (16)
  - Blood potassium decreased [Unknown]
  - Hypertension [Unknown]
  - Paraesthesia [Unknown]
  - Fluid retention [Unknown]
  - Micturition urgency [Unknown]
  - Eczema [Unknown]
  - Peripheral swelling [Recovered/Resolved]
  - Eye swelling [Recovered/Resolved]
  - Dyspnoea [Unknown]
  - Snoring [Unknown]
  - Libido decreased [Unknown]
  - Alanine aminotransferase increased [Not Recovered/Not Resolved]
  - Constipation [Unknown]
  - Nausea [Unknown]
  - Abdominal pain upper [Unknown]
  - Blood cholesterol abnormal [Unknown]
